FAERS Safety Report 26149445 (Version 1)
Quarter: 2025Q4

REPORT INFORMATION
  Report Type: Spontaneous
  Country: US (occurrence: US)
  Receive Date: 20251212
  Receipt Date: 20251212
  Transmission Date: 20260118
  Serious: Yes (Other)
  Sender: RANBAXY
  Company Number: US-SUN PHARMACEUTICAL INDUSTRIES INC-2025R1-541565

PATIENT
  Age: 71 Year
  Sex: Male

DRUGS (2)
  1. METFORMIN [Suspect]
     Active Substance: METFORMIN HYDROCHLORIDE
     Indication: Diabetes mellitus
     Dosage: 2000 MILLIGRAM, DAILY
     Route: 048
  2. SEMAGLUTIDE [Suspect]
     Active Substance: SEMAGLUTIDE
     Indication: Diabetes mellitus
     Dosage: 7 MILLIGRAM, DAILY
     Route: 048

REACTIONS (1)
  - Diabetes mellitus inadequate control [Recovering/Resolving]
